FAERS Safety Report 7915115-0 (Version None)
Quarter: 2011Q4

REPORT INFORMATION
  Report Type: 
  Country: None (occurrence: None)
  Receive Date: 20111115
  Receipt Date: 20111109
  Transmission Date: 20120403
  Serious: Yes (Other)
  Sender: FDA-Public Use
  Company Number: US-GILEAD-2011-0039321

PATIENT
  Age: 25 Year
  Sex: Female

DRUGS (5)
  1. MEDROXYPROGESTERONE [Concomitant]
     Indication: CONTRACEPTION
     Dates: start: 20100614, end: 20110127
  2. CIPRO [Concomitant]
     Dates: start: 20110127, end: 20110202
  3. EMTRICITABINE/TENOFOVIR DISOPROXIL FUMARATE [Suspect]
     Indication: HIV INFECTION
     Dates: start: 20100322, end: 20110223
  4. PREDNISOLONE [Concomitant]
     Dates: start: 20110127, end: 20110130
  5. ACETAMINOPHEN [Concomitant]
     Dates: start: 20110127, end: 20110130

REACTIONS (1)
  - ABORTION SPONTANEOUS [None]
